FAERS Safety Report 20286453 (Version 1)
Quarter: 2022Q1

REPORT INFORMATION
  Report Type: Report from Study
  Country: CA (occurrence: CA)
  Receive Date: 20220103
  Receipt Date: 20220103
  Transmission Date: 20220423
  Serious: Yes (Other)
  Sender: FDA-Public Use
  Company Number: None

PATIENT
  Age: 64 Year
  Sex: Female

DRUGS (2)
  1. AMLODIPINE [Suspect]
     Active Substance: AMLODIPINE BESYLATE
     Indication: Hypertension
     Dosage: 1 EVERY 1 DAYS
     Route: 048
  2. SANDOSTATIN [Suspect]
     Active Substance: OCTREOTIDE ACETATE
     Indication: Carcinoid tumour
     Dosage: 1 EVERY 1 MONTHS
     Route: 030

REACTIONS (13)
  - Asthenia [Unknown]
  - Blood chromogranin A increased [Unknown]
  - Bronchitis [Unknown]
  - Cardiac disorder [Unknown]
  - Fatigue [Unknown]
  - Hypertension [Unknown]
  - Influenza [Unknown]
  - Injection site mass [Unknown]
  - Injection site pain [Unknown]
  - Malaise [Unknown]
  - Pulmonary mass [Unknown]
  - Pyrexia [Unknown]
  - Drug ineffective [Unknown]
